FAERS Safety Report 7875513-0 (Version None)
Quarter: 2011Q4

REPORT INFORMATION
  Report Type: 
  Country: None (occurrence: None)
  Receive Date: 20111031
  Receipt Date: 20111025
  Transmission Date: 20120403
  Serious: Yes (Hospitalization)
  Sender: FDA-Public Use
  Company Number: AU-B.I. PHARMACEUTICALS,INC./RIDGEFIELD-2011-AU-01591AU

PATIENT
  Sex: Female
  Weight: 68 kg

DRUGS (5)
  1. SLOW-K [Concomitant]
     Dosage: 2 TWICE DAILY
  2. PRADAXA [Suspect]
     Indication: ATRIAL FIBRILLATION
     Dosage: 220 MG
     Dates: start: 20110714, end: 20110801
  3. NOTEN [Concomitant]
  4. OSTELIN [Concomitant]
  5. LASIX [Concomitant]

REACTIONS (1)
  - FALL [None]
